FAERS Safety Report 6337946-3 (Version None)
Quarter: 2009Q3

REPORT INFORMATION
  Report Type: 
  Country: None (occurrence: None)
  Receive Date: 20090902
  Receipt Date: 20090821
  Transmission Date: 20100115
  Serious: Yes (Other)
  Sender: FDA-Public Use
  Company Number: AU-MYLANLABS-2009S1014933

PATIENT
  Age: 64 Year
  Sex: Male

DRUGS (7)
  1. TILODENE [Suspect]
     Indication: CORONARY ARTERIAL STENT INSERTION
     Route: 048
     Dates: start: 20090807
  2. TRITACE [Concomitant]
  3. METOPROLOL TARTRATE [Concomitant]
  4. CIPRAMIL [Concomitant]
     Indication: DEPRESSION
  5. TEGRETOL [Concomitant]
  6. ZANTAC [Concomitant]
  7. SOMAC [Concomitant]

REACTIONS (3)
  - DEPRESSION [None]
  - FATIGUE [None]
  - HYPERSOMNIA [None]
